FAERS Safety Report 15093710 (Version 2)
Quarter: 2018Q3

REPORT INFORMATION
  Report Type: Other
  Country: CN (occurrence: CN)
  Receive Date: 20180629
  Receipt Date: 20180706
  Transmission Date: 20181010
  Serious: Yes (Death, Other)
  Sender: FDA-Public Use
  Company Number: CN-ACTELION-A-US2018-174729

PATIENT

DRUGS (2)
  1. VENTAVIS [Suspect]
     Active Substance: ILOPROST
     Dosage: 20 MCG/ML
     Route: 055
  2. VENTAVIS [Suspect]
     Active Substance: ILOPROST
     Indication: MATERNAL EXPOSURE DURING PREGNANCY
     Dosage: 20 MCG/ML
     Route: 064

REACTIONS (4)
  - Maternal exposure during pregnancy [Unknown]
  - Neonatal respiratory distress syndrome [Fatal]
  - Low birth weight baby [Unknown]
  - Premature baby [Unknown]
